FAERS Safety Report 6369911-4 (Version None)
Quarter: 2009Q3

REPORT INFORMATION
  Report Type: 
  Country: None (occurrence: None)
  Receive Date: 20090923
  Receipt Date: 20071128
  Transmission Date: 20100115
  Serious: Yes (Other)
  Sender: FDA-Public Use
  Company Number: US-ASTRAZENECA-2006UW11009

PATIENT
  Age: 18875 Day
  Sex: Female
  Weight: 55.5 kg

DRUGS (38)
  1. SEROQUEL [Suspect]
     Indication: BIPOLAR DISORDER
     Dosage: 50MG-400MG
     Route: 048
     Dates: start: 20031006
  2. SEROQUEL [Suspect]
     Indication: SCHIZOPHRENIA
     Dosage: 50MG-400MG
     Route: 048
     Dates: start: 20031006
  3. SEROQUEL [Suspect]
     Indication: PSYCHOTIC DISORDER
     Dosage: 50MG-400MG
     Route: 048
     Dates: start: 20031006
  4. HALDOL [Concomitant]
  5. THORAZINE [Concomitant]
  6. ACETAMINOPHEN [Concomitant]
  7. ALBUTEROL [Concomitant]
  8. AMOXICILLIN [Concomitant]
  9. ATIVAN [Concomitant]
  10. AZITHROMYCIN [Concomitant]
  11. CEFTRIAXONE [Concomitant]
  12. DEPAKOTE [Concomitant]
  13. EFFEXOR [Concomitant]
  14. FENTANYL CITRATE [Concomitant]
  15. FLUCONAZOLE [Concomitant]
  16. FLUDROCORTISONE [Concomitant]
  17. FOLIC ACID [Concomitant]
  18. FUROSEMIDE [Concomitant]
  19. HYDROCORTISONE [Concomitant]
  20. INSULIN [Concomitant]
  21. IPRATROPIUM BROMIDE [Concomitant]
  22. LAMICTAL [Concomitant]
  23. METHADONE HCL [Concomitant]
  24. METOCLOPRAMIDE [Concomitant]
  25. MORPHINE SULFATE [Concomitant]
  26. MICONAZOLE [Concomitant]
  27. NICOTINE [Concomitant]
  28. NOREPINEPHRINE BITARTRATE [Concomitant]
  29. ONDANSETRON [Concomitant]
  30. PHENYLEPHRINE [Concomitant]
  31. PHYTONADIONE [Concomitant]
  32. PROPOFOL [Concomitant]
  33. TOPAMAX [Concomitant]
  34. TRAMADOL HCL [Concomitant]
  35. TYGACIL [Concomitant]
  36. VASOPRESSIN [Concomitant]
  37. XIFAXAN [Concomitant]
  38. DIAZEPAM [Concomitant]

REACTIONS (2)
  - DIABETES MELLITUS [None]
  - DIABETIC COMA [None]
